FAERS Safety Report 7244695-6 (Version None)
Quarter: 2011Q1

REPORT INFORMATION
  Report Type: 
  Country: None (occurrence: None)
  Receive Date: 20110126
  Receipt Date: 20110117
  Transmission Date: 20110831
  Serious: Yes (Hospitalization)
  Sender: FDA-Public Use
  Company Number: US-BIOGENIDEC-2010BI043731

PATIENT
  Age: 47 Year
  Sex: Male

DRUGS (1)
  1. TYSABRI [Suspect]
     Indication: MULTIPLE SCLEROSIS
     Route: 042
     Dates: start: 20100719, end: 20101201

REACTIONS (4)
  - SECONDARY PROGRESSIVE MULTIPLE SCLEROSIS [None]
  - DRUG INEFFECTIVE [None]
  - PROTEUS INFECTION [None]
  - URINARY TRACT INFECTION [None]
